FAERS Safety Report 4822450-1 (Version None)
Quarter: 2005Q4

REPORT INFORMATION
  Report Type: 
  Country: None (occurrence: None)
  Receive Date: 20051104
  Receipt Date: 20051025
  Transmission Date: 20060501
  Serious: Yes (Death)
  Sender: FDA-Public Use
  Company Number: CERZ-11039

PATIENT
  Age: 9 Year
  Sex: Male
  Weight: 15 kg

DRUGS (1)
  1. CEREZYME [Suspect]
     Indication: GAUCHER'S DISEASE
     Dosage: 1800 UNITS Q2WKS IV
     Route: 030
     Dates: start: 20010312, end: 20051003

REACTIONS (3)
  - HAEMORRHAGE [None]
  - NEUROLOGICAL SYMPTOM [None]
  - RESPIRATORY FAILURE [None]
